FAERS Safety Report 25716796 (Version 1)
Quarter: 2025Q3

REPORT INFORMATION
  Report Type: Report from Study
  Country: CA (occurrence: CA)
  Receive Date: 20250822
  Receipt Date: 20250822
  Transmission Date: 20251020
  Serious: Yes (Life-Threatening, Other)
  Sender: NORDIC PHARMA
  Company Number: CA-NORDICGR-063703

PATIENT
  Age: 12 Year
  Sex: Female

DRUGS (7)
  1. METHOTREXATE [Suspect]
     Active Substance: METHOTREXATE
     Indication: Product used for unknown indication
     Route: 065
  2. PREDNISONE [Concomitant]
     Active Substance: PREDNISONE
     Indication: Product used for unknown indication
     Route: 065
  3. CYCLOSPORINE [Concomitant]
     Active Substance: CYCLOSPORINE
     Indication: Product used for unknown indication
     Route: 065
  4. INDOMETHACIN [Concomitant]
     Active Substance: INDOMETHACIN
     Indication: Product used for unknown indication
     Route: 065
  5. ANAKINRA [Concomitant]
     Active Substance: ANAKINRA
     Indication: Product used for unknown indication
     Route: 058
  6. ACTEMRA [Concomitant]
     Active Substance: TOCILIZUMAB
     Indication: Product used for unknown indication
     Route: 042
  7. ILARIS [Concomitant]
     Active Substance: CANAKINUMAB
     Indication: Still^s disease
     Route: 058

REACTIONS (17)
  - Fatigue [Recovered/Resolved]
  - Rash [Recovered/Resolved]
  - Product use issue [Recovered/Resolved]
  - Hepatic enzyme increased [Recovered/Resolved]
  - Urticaria [Recovered/Resolved]
  - Arthropod bite [Recovered/Resolved]
  - Injection site rash [Recovered/Resolved]
  - Still^s disease [Recovered/Resolved]
  - Scratch [Recovered/Resolved]
  - Condition aggravated [Recovered/Resolved]
  - Skin lesion [Recovered/Resolved]
  - Suicide attempt [Recovered/Resolved]
  - Pyrexia [Recovered/Resolved]
  - Pruritus [Recovered/Resolved]
  - Erythema [Recovered/Resolved]
  - Therapeutic response shortened [Recovered/Resolved]
  - Mental impairment [Recovered/Resolved]
